FAERS Safety Report 8089535-0 (Version None)
Quarter: 2012Q1

REPORT INFORMATION
  Report Type: 
  Country: None (occurrence: None)
  Receive Date: 20120128
  Receipt Date: 20110616
  Transmission Date: 20120608
  Serious: No
  Sender: FDA-Public Use
  Company Number: US-ABBOTT-11P-163-0733221-00

PATIENT
  Age: 48 Year
  Sex: Male

DRUGS (1)
  1. TRUDEXA 40 MG/ 0.8 ML PRE-FILLED SYRINGE [Suspect]
     Indication: PSORIATIC ARTHROPATHY
     Dates: start: 20080401

REACTIONS (4)
  - PSORIASIS [None]
  - LOSS OF EMPLOYMENT [None]
  - ARTHRITIS [None]
  - CONDITION AGGRAVATED [None]
